FAERS Safety Report 11672056 (Version 1)
Quarter: 2015Q4

REPORT INFORMATION
  Report Type: Spontaneous
  Country: JP (occurrence: JP)
  Receive Date: 20151028
  Receipt Date: 20151028
  Transmission Date: 20160304
  Serious: Yes (Death, Other)
  Sender: FDA-Public Use
  Company Number: JP-ROCHE-1609064

PATIENT
  Age: 82 Year
  Sex: Male

DRUGS (2)
  1. HERCEPTIN [Suspect]
     Active Substance: TRASTUZUMAB
     Indication: GASTRIC CANCER
     Dosage: DOSAGE IS UNCERTAIN. ?SEVEN COURSES
     Route: 041
  2. ABRAXANE [Concomitant]
     Active Substance: PACLITAXEL
     Indication: GASTRIC CANCER
     Dosage: DOSAGE IS UNCERTAIN. ?13 COURSES
     Route: 041

REACTIONS (3)
  - Disease progression [Fatal]
  - Ejection fraction decreased [Unknown]
  - Neuropathy peripheral [Unknown]
